FAERS Safety Report 17976609 (Version 1)
Quarter: 2020Q3

REPORT INFORMATION
  Report Type: Spontaneous
  Country: FR (occurrence: FR)
  Receive Date: 20200703
  Receipt Date: 20200703
  Transmission Date: 20201103
  Serious: Yes (Death, Life-Threatening, Other)
  Sender: FDA-Public Use
  Company Number: FR-AUROBINDO-AUR-APL-2020-031506

PATIENT
  Age: 71 Year
  Sex: Male
  Weight: 68.5 kg

DRUGS (3)
  1. PROPRANOLOL [Concomitant]
     Active Substance: PROPRANOLOL HYDROCHLORIDE
     Indication: HYPERTENSION
     Dosage: 160 MILLIGRAM, ONCE A DAY, 1 TABLET IN THE MORNING
     Route: 048
     Dates: end: 20191011
  2. LYSO 6 [Suspect]
     Active Substance: LYSOZYME\PYRIDOXINE
     Indication: APHTHOUS ULCER
     Dosage: 1 DOSAGE FORM, 1 TOTAL
     Route: 048
     Dates: start: 20191011, end: 20191011
  3. PERINDOPRIL TABLET [Suspect]
     Active Substance: PERINDOPRIL
     Indication: HYPERTENSION
     Dosage: 1 DOSAGE FORM, ONCE A DAY, 1 TABLET IN THE MORNING
     Route: 048
     Dates: end: 20191011

REACTIONS (2)
  - Angioedema [Fatal]
  - Cardio-respiratory arrest [Fatal]

NARRATIVE: CASE EVENT DATE: 20191011
